FAERS Safety Report 22161427 (Version 2)
Quarter: 2023Q2

REPORT INFORMATION
  Report Type: Report from Study
  Country: CA (occurrence: None)
  Receive Date: 20230331
  Receipt Date: 20230529
  Transmission Date: 20230721
  Serious: Yes (Hospitalization)
  Sender: FDA-Public Use
  Company Number: 2023A073303

PATIENT
  Sex: Male

DRUGS (3)
  1. TEZSPIRE [Suspect]
     Active Substance: TEZEPELUMAB-EKKO
     Indication: Asthma
     Dosage: 210.0MG UNKNOWN
     Route: 058
     Dates: start: 20221125
  2. VENTOLIN [Concomitant]
     Active Substance: ALBUTEROL SULFATE
     Dosage: AS REQUIRED
  3. SYMBICORT [Concomitant]
     Active Substance: BUDESONIDE\FORMOTEROL FUMARATE DIHYDRATE
     Dosage: 200MCG 2 PUFFS FOUR TIMES A DAY
     Dates: start: 2000

REACTIONS (6)
  - Pneumonia [Unknown]
  - Cardiac failure [Unknown]
  - Pulmonary oedema [Unknown]
  - Renal failure [Unknown]
  - Delirium [Unknown]
  - Post-acute COVID-19 syndrome [Unknown]
